FAERS Safety Report 14673210 (Version 1)
Quarter: 2018Q1

REPORT INFORMATION
  Report Type: Spontaneous
  Country: HU (occurrence: HU)
  Receive Date: 20180323
  Receipt Date: 20180323
  Transmission Date: 20180509
  Serious: Yes (Other)
  Sender: FDA-Public Use
  Company Number: HU-ACTELION-A-CH2018-169177

PATIENT
  Age: 63 Year
  Sex: Female
  Weight: 54 kg

DRUGS (6)
  1. QUAMATEL [Concomitant]
     Active Substance: FAMOTIDINE
     Indication: GASTROOESOPHAGEAL REFLUX DISEASE
     Dosage: 40 MG, BID
     Route: 048
     Dates: start: 2010
  2. CLOPIDOGREL [Concomitant]
     Active Substance: CLOPIDOGREL BISULFATE
     Indication: PERIPHERAL VASCULAR DISORDER
     Dosage: 75 MG, OD
     Route: 048
     Dates: start: 2010
  3. NEBILET [Concomitant]
     Active Substance: NEBIVOLOL
     Indication: RAYNAUD^S PHENOMENON
     Dosage: 2.5 MG, OD
     Route: 048
     Dates: start: 2010
  4. STAYVEER [Suspect]
     Active Substance: BOSENTAN
     Indication: SKIN ULCER
     Dosage: 62.5 MG, BID
     Route: 048
     Dates: start: 20180123, end: 20180220
  5. MEDROL [Concomitant]
     Active Substance: METHYLPREDNISOLONE
     Indication: POLYMYOSITIS
     Dosage: 8 MG, OD
     Route: 048
     Dates: start: 2010
  6. TRENTAL [Concomitant]
     Active Substance: PENTOXIFYLLINE
     Indication: RAYNAUD^S PHENOMENON
     Dosage: 400 MG, BID
     Route: 048
     Dates: start: 2010

REACTIONS (2)
  - Oedema peripheral [Recovered/Resolved]
  - Urticaria [Recovered/Resolved]

NARRATIVE: CASE EVENT DATE: 20180202
